FAERS Safety Report 16700689 (Version 1)
Quarter: 2019Q3

REPORT INFORMATION
  Report Type: Spontaneous
  Country: US (occurrence: US)
  Receive Date: 20190814
  Receipt Date: 20190814
  Transmission Date: 20191004
  Serious: No
  Sender: FDA-Public Use
  Company Number: US-LUPIN PHARMACEUTICALS INC.-2019-02652

PATIENT
  Age: 45 Year

DRUGS (1)
  1. LEVOFLOXACIN. [Suspect]
     Active Substance: LEVOFLOXACIN
     Indication: LOWER RESPIRATORY TRACT INFECTION
     Dosage: 750 MILLIGRAM, QD
     Route: 065

REACTIONS (3)
  - Inflammatory pain [Unknown]
  - Pain in extremity [Unknown]
  - Tendonitis [Unknown]
